FAERS Safety Report 7990719-8 (Version None)
Quarter: 2011Q4

REPORT INFORMATION
  Report Type: 
  Country: None (occurrence: None)
  Receive Date: 20111219
  Receipt Date: 20111213
  Transmission Date: 20120403
  Serious: Yes (Life-Threatening, Other)
  Sender: FDA-Public Use
  Company Number: US-BAYER-2011-038240

PATIENT
  Age: 18 Year
  Sex: Female
  Weight: 99 kg

DRUGS (3)
  1. OMEPRAZOLE [Concomitant]
     Dosage: 20 MG, DAILY
  2. YAZ [Suspect]
     Indication: ORAL CONTRACEPTION
     Dosage: UNK
     Dates: start: 20081101, end: 20091001
  3. ALLEGRA-D 12 HOUR [Concomitant]
     Dosage: UNK UNK, DAILY

REACTIONS (6)
  - CHOLELITHIASIS [None]
  - ORGAN FAILURE [None]
  - GALLBLADDER NON-FUNCTIONING [None]
  - PAIN [None]
  - EMOTIONAL DISTRESS [None]
  - ANHEDONIA [None]
